FAERS Safety Report 17818036 (Version 3)
Quarter: 2020Q4

REPORT INFORMATION
  Report Type: Spontaneous
  Country: GB (occurrence: GB)
  Receive Date: 20200522
  Receipt Date: 20201230
  Transmission Date: 20210113
  Serious: Yes (Disabling)
  Sender: FDA-Public Use
  Company Number: GB-BAUSCH-BL-2020-014695

PATIENT
  Age: 40 Year
  Sex: Female
  Weight: 70 kg

DRUGS (2)
  1. DOXYCYCLINE. [Suspect]
     Active Substance: DOXYCYCLINE
     Indication: INFECTED BITE
     Dosage: ADVISED TO DO 5 DAYS INSTEAD OF 7 DAY COURSE
     Route: 048
     Dates: start: 20200426, end: 20200501
  2. METRONIDAZOLE. [Interacting]
     Active Substance: METRONIDAZOLE
     Indication: INFECTED BITE
     Route: 048
     Dates: start: 20200426, end: 20200428

REACTIONS (8)
  - Parosmia [Unknown]
  - Drug interaction [Unknown]
  - Nausea [Recovering/Resolving]
  - Vomiting [Unknown]
  - Lethargy [Unknown]
  - Headache [Recovered/Resolved]
  - Abdominal pain upper [Recovering/Resolving]
  - Abdominal discomfort [Not Recovered/Not Resolved]

NARRATIVE: CASE EVENT DATE: 20200426
